FAERS Safety Report 8795509 (Version 1)
Quarter: 2012Q4

REPORT INFORMATION
  Report Type: 
  Country: US (occurrence: US)
  Receive Date: 20120917
  Receipt Date: 20120917
  Transmission Date: 20130627
  Serious: Yes (Other)
  Sender: FDA-Public Use
  Company Number: US-ASTRAZENECA-2012SE70765

PATIENT
  Age: 61 Year
  Sex: Female

DRUGS (1)
  1. TOPROL XL [Suspect]
     Route: 048

REACTIONS (7)
  - Adverse drug reaction [Unknown]
  - Heart rate decreased [Unknown]
  - Rash [Unknown]
  - Oedema peripheral [Unknown]
  - Oedema peripheral [Unknown]
  - Dysgeusia [Unknown]
  - Nausea [Unknown]
